FAERS Safety Report 6960653-0 (Version None)
Quarter: 2010Q3

REPORT INFORMATION
  Report Type: 
  Country: None (occurrence: None)
  Receive Date: 20100901
  Receipt Date: 20100823
  Transmission Date: 20110219
  Serious: Yes (Death)
  Sender: FDA-Public Use
  Company Number: FR-PFIZER INC-2010105819

PATIENT
  Sex: Female

DRUGS (1)
  1. ZAVEDOS [Suspect]

REACTIONS (1)
  - LEUKAEMIA [None]
